FAERS Safety Report 23781289 (Version 1)
Quarter: 2024Q2

REPORT INFORMATION
  Report Type: Report from Study
  Country: PL (occurrence: PL)
  Receive Date: 20240425
  Receipt Date: 20240425
  Transmission Date: 20240716
  Serious: Yes (Other)
  Sender: FDA-Public Use
  Company Number: PL-JNJFOC-20240460446

PATIENT

DRUGS (5)
  1. DARATUMUMAB [Suspect]
     Active Substance: DARATUMUMAB
     Indication: Plasma cell myeloma
     Dosage: CYCLES 1-2: QW, CYCLES 3-6: Q2W, CYCLES 7+: Q4W TO PD
     Route: 065
  2. REVLIMID [Suspect]
     Active Substance: LENALIDOMIDE
     Indication: Plasma cell myeloma
     Dosage: ON DAYS 1-21 THROUGH PD
     Route: 048
  3. DEXAMETHASONE [Suspect]
     Active Substance: DEXAMETHASONE
     Indication: Plasma cell myeloma
     Dosage: PO OR IV ONCE WEEKLY FOR PD
     Route: 065
  4. MELPHALAN [Concomitant]
     Active Substance: MELPHALAN
     Indication: Plasma cell myeloma
     Route: 065
  5. LENALIDOMIDE [Concomitant]
     Active Substance: LENALIDOMIDE
     Indication: Plasma cell myeloma
     Route: 065

REACTIONS (21)
  - Neutropenia [Unknown]
  - Anaemia [Unknown]
  - Thrombocytopenia [Unknown]
  - Pneumonia [Unknown]
  - Lymphopenia [Unknown]
  - Leukopenia [Unknown]
  - Diarrhoea [Unknown]
  - Upper respiratory tract infection [Unknown]
  - Fatigue [Unknown]
  - Constipation [Unknown]
  - Muscle spasms [Unknown]
  - Pyrexia [Unknown]
  - Nausea [Unknown]
  - Dyspnoea [Unknown]
  - Bronchitis [Unknown]
  - Febrile neutropenia [Unknown]
  - Cataract [Unknown]
  - Insomnia [Unknown]
  - Blood potassium decreased [Unknown]
  - Inflammation [Unknown]
  - Cough [Unknown]
